FAERS Safety Report 7804401-0 (Version None)
Quarter: 2011Q4

REPORT INFORMATION
  Report Type: 
  Country: None (occurrence: None)
  Receive Date: 20111010
  Receipt Date: 20110926
  Transmission Date: 20120403
  Serious: Yes (Death)
  Sender: FDA-Public Use
  Company Number: US-ROCHE-798903

PATIENT
  Sex: Female

DRUGS (19)
  1. LEVOTHYROXINE SODIUM [Concomitant]
  2. ISOPTO TEARS [Concomitant]
  3. CYCLOPHOSPHAMIDE [Concomitant]
  4. VALCYTE [Suspect]
     Indication: CHRONIC HEPATITIS
     Route: 048
     Dates: start: 20080603, end: 20110219
  5. FUROSEMIDE [Concomitant]
  6. COMPAZINE [Concomitant]
  7. VERAPAMIL EXTENDED-RELEASE [Concomitant]
  8. ADVAIR DISKUS 100/50 [Concomitant]
     Dosage: 100/50
  9. OMEPRAZOLE [Concomitant]
  10. VITAMIN B-12 [Concomitant]
  11. FEBUXOSTAT [Concomitant]
     Indication: GOUT
  12. FOLIC ACID [Concomitant]
  13. ACETAMINOPHEN [Concomitant]
  14. AUGMENTIN '125' [Concomitant]
     Dosage: 875/125
  15. LOPERAMIDE HCL [Concomitant]
  16. LORAZEPAM [Concomitant]
  17. LEVAQUIN [Concomitant]
  18. VITAMIN B COMPLEX CAP [Concomitant]
  19. OFATUMUMAB [Concomitant]

REACTIONS (1)
  - DEATH [None]
